FAERS Safety Report 9741553 (Version 1)
Quarter: 2013Q4

REPORT INFORMATION
  Report Type: Spontaneous
  Country: FR (occurrence: FR)
  Receive Date: 20131210
  Receipt Date: 20131210
  Transmission Date: 20140711
  Serious: Yes (Life-Threatening, Hospitalization)
  Sender: FDA-Public Use
  Company Number: PHHY2013FR141509

PATIENT
  Age: 72 Year
  Sex: Female

DRUGS (10)
  1. ECONAZOLE SANDOZ [Suspect]
     Indication: ULCER
     Route: 061
     Dates: start: 20111018, end: 20111103
  2. PREVISCAN//FLUINDIONE [Interacting]
     Indication: RHEUMATOID VASCULITIS
     Route: 048
     Dates: end: 20111105
  3. AMLOR [Concomitant]
     Indication: PRODUCT USED FOR UNKNOWN INDICATION
     Route: 065
  4. CORTANCYL [Concomitant]
     Indication: PRODUCT USED FOR UNKNOWN INDICATION
     Route: 065
  5. DAFALGAN [Concomitant]
     Indication: PRODUCT USED FOR UNKNOWN INDICATION
     Route: 065
  6. DUROGESIC [Concomitant]
     Indication: PRODUCT USED FOR UNKNOWN INDICATION
     Route: 065
  7. FORLAX [Concomitant]
     Indication: PRODUCT USED FOR UNKNOWN INDICATION
     Route: 065
  8. METOJECT [Concomitant]
     Indication: PRODUCT USED FOR UNKNOWN INDICATION
     Route: 065
  9. PARIET [Concomitant]
     Indication: PRODUCT USED FOR UNKNOWN INDICATION
     Route: 065
  10. SPECIAFOLDINE [Concomitant]
     Indication: PRODUCT USED FOR UNKNOWN INDICATION
     Dosage: 3 DF, UNK
     Route: 065

REACTIONS (5)
  - International normalised ratio increased [Recovered/Resolved with Sequelae]
  - Abdominal wall haematoma [Recovered/Resolved]
  - Ulcer haemorrhage [Recovered/Resolved]
  - Renal failure acute [Recovered/Resolved]
  - Anuria [Unknown]
